FAERS Safety Report 6811482-X (Version None)
Quarter: 2010Q2

REPORT INFORMATION
  Report Type: 
  Country: None (occurrence: None)
  Receive Date: 20100629
  Receipt Date: 20100629
  Transmission Date: 20101027
  Serious: Yes (Life-Threatening, Hospitalization)
  Sender: FDA-Public Use
  Company Number: None

PATIENT
  Sex: Male
  Weight: 81.6475 kg

DRUGS (2)
  1. BACTRIM [Suspect]
     Indication: CELLULITIS
     Dosage: 800/160 1 TABLET 2X DAY
     Dates: start: 20100529, end: 20100610
  2. BACTRIM [Suspect]
     Indication: STAPHYLOCOCCAL INFECTION
     Dosage: 800/160 1 TABLET 2X DAY
     Dates: start: 20100529, end: 20100610

REACTIONS (3)
  - DECREASED APPETITE [None]
  - FATIGUE [None]
  - HEADACHE [None]
